FAERS Safety Report 8820101 (Version 2)
Quarter: 2012Q4

REPORT INFORMATION
  Report Type: 
  Country: BR (occurrence: BR)
  Receive Date: 20121001
  Receipt Date: 20121101
  Transmission Date: 20130627
  Serious: Yes (Other)
  Sender: FDA-Public Use
  Company Number: BR-VERTEX PHARMACEUTICAL INC.-2012-021842

PATIENT
  Age: 67 Year
  Sex: Male

DRUGS (5)
  1. INCIVO [Suspect]
     Indication: HEPATITIS C
     Dosage: UNK, tid
     Route: 048
     Dates: start: 20120821, end: 20120918
  2. INCIVO [Suspect]
     Dosage: UNK, bid
     Dates: start: 20120821
  3. PEGINTERFERON ALFA [Concomitant]
     Indication: HEPATITIS C
     Dosage: UNK
     Route: 065
     Dates: start: 20120821
  4. RIBAVIRIN [Concomitant]
     Indication: HEPATITIS C
     Dosage: Dosage Form: Unknown
     Route: 065
     Dates: start: 201205
  5. INTERFERON [Concomitant]
     Indication: HEPATITIS C
     Dosage: UNK
     Route: 065
     Dates: start: 201205

REACTIONS (5)
  - Rash [Not Recovered/Not Resolved]
  - Fistula [Not Recovered/Not Resolved]
  - Fatigue [Unknown]
  - Nausea [Unknown]
  - Pruritus [Not Recovered/Not Resolved]
